FAERS Safety Report 4738299-4 (Version None)
Quarter: 2005Q3

REPORT INFORMATION
  Report Type: 
  Country: None (occurrence: None)
  Receive Date: 20050803
  Receipt Date: 20050729
  Transmission Date: 20060218
  Serious: Yes (Hospitalization)
  Sender: FDA-Public Use
  Company Number: LTI2005A00190

PATIENT
  Age: 72 Year
  Sex: Female

DRUGS (5)
  1. OGAST 30 MG (LANSOPRAZOLE) (CAPSULES) [Suspect]
     Indication: OESOPHAGITIS
     Dosage: 30 MG (30 MG, 1 IN 1 D) ORAL
     Route: 048
  2. ALLOPURINOL [Concomitant]
  3. PREVISCAN (FLUINDIONE) (20 MILLIGRAM, TABLETS) [Concomitant]
  4. FUROSEMIDE [Concomitant]
  5. ALDACTONE [Concomitant]

REACTIONS (3)
  - BREAST CANCER STAGE III [None]
  - COMA [None]
  - ENCEPHALOPATHY [None]
